FAERS Safety Report 16437112 (Version 1)
Quarter: 2019Q2

REPORT INFORMATION
  Report Type: Spontaneous
  Country: AU (occurrence: AU)
  Receive Date: 20190615
  Receipt Date: 20190615
  Transmission Date: 20190711
  Serious: Yes (Hospitalization)
  Sender: FDA-Public Use
  Company Number: PHHY2019AU131015

PATIENT
  Age: 57 Year
  Sex: Male

DRUGS (2)
  1. PREDNISOLONE. [Suspect]
     Active Substance: PREDNISOLONE
     Dosage: 20 MG, QD
     Route: 065
  2. PREDNISOLONE. [Suspect]
     Active Substance: PREDNISOLONE
     Indication: DECREASED APPETITE
     Dosage: 10 MG, QD
     Route: 065

REACTIONS (5)
  - Intentional product misuse [Unknown]
  - Escherichia infection [Unknown]
  - Necrotising soft tissue infection [Unknown]
  - Clostridial infection [Unknown]
  - Product use in unapproved indication [Unknown]
